FAERS Safety Report 16285363 (Version 3)
Quarter: 2019Q2

REPORT INFORMATION
  Report Type: Spontaneous
  Country: NZ (occurrence: NZ)
  Receive Date: 20190508
  Receipt Date: 20190528
  Transmission Date: 20190711
  Serious: Yes (Hospitalization, Other)
  Sender: FDA-Public Use
  Company Number: NZ-MYLANLABS-2018M1023816

PATIENT
  Age: 75 Year
  Sex: Female

DRUGS (2)
  1. CLOZARIL [Suspect]
     Active Substance: CLOZAPINE
     Indication: SCHIZOPHRENIA
     Dosage: UNK
     Route: 048
     Dates: start: 20090911, end: 20190503
  2. CLOZARIL [Suspect]
     Active Substance: CLOZAPINE
     Dosage: UNK
     Route: 048
     Dates: start: 20190506

REACTIONS (11)
  - Haematocrit increased [Unknown]
  - Product dose omission [Unknown]
  - White blood cell count increased [Unknown]
  - Neutrophil count decreased [Recovered/Resolved]
  - Lower respiratory tract infection [Unknown]
  - Neutrophil count increased [Unknown]
  - White blood cell count decreased [Recovered/Resolved]
  - Influenza [Not Recovered/Not Resolved]
  - Mean cell haemoglobin decreased [Recovering/Resolving]
  - Red blood cell count increased [Unknown]
  - Platelet count increased [Unknown]

NARRATIVE: CASE EVENT DATE: 20180406
